FAERS Safety Report 4984289-6 (Version None)
Quarter: 2006Q2

REPORT INFORMATION
  Report Type: 
  Country: None (occurrence: None)
  Receive Date: 20060420
  Receipt Date: 20060407
  Transmission Date: 20061013
  Serious: Yes (Other)
  Sender: FDA-Public Use
  Company Number: FR-2006-008068

PATIENT
  Age: 48 Year
  Sex: Female
  Weight: 9 kg

DRUGS (1)
  1. MIRENA [Suspect]
     Indication: CONTRACEPTION
     Dosage: 20 UG, INTRA-UTERINE
     Route: 015
     Dates: start: 20040101

REACTIONS (2)
  - INTRACRANIAL PRESSURE INCREASED [None]
  - WEIGHT DECREASED [None]
